FAERS Safety Report 8691206 (Version 2)
Quarter: 2013Q4

REPORT INFORMATION
  Report Type: Spontaneous
  Country: US (occurrence: None)
  Receive Date: 20120712
  Receipt Date: 20131223
  Transmission Date: 20140711
  Serious: Yes (Other)
  Sender: FDA-Public Use
  Company Number: 218021

PATIENT
  Age: 61 Year
  Sex: Female

DRUGS (12)
  1. PICATO [Suspect]
     Indication: ACTINIC KERATOSIS
     Dosage: (1 IN 1 D), TOPICAL
     Route: 061
     Dates: start: 20120605, end: 20120606
  2. VERAPAMIL HYDROCHLORIDE [Concomitant]
  3. MICARDIS [Concomitant]
  4. EXEMESTANE [Concomitant]
  5. METFORMIN HYDROCHLORIDE [Concomitant]
  6. JANUVIA [Concomitant]
  7. VENLAFAXINE [Concomitant]
  8. CALCIUM CARBONATE [Concomitant]
  9. VITAMIN (VITAMINS NOS) [Concomitant]
  10. ACIDOPHILUS (LACTOBACILLUS ACIDOPHILUS) [Concomitant]
  11. ASPIRIN (ACETYLSALICYLIC ACID) [Concomitant]
  12. ZOMETA (ZOLEDRONIC ACID) [Concomitant]

REACTIONS (8)
  - Keratitis [None]
  - Toxicity to various agents [None]
  - Application site infection [None]
  - Application site burn [None]
  - Application site vesicles [None]
  - Application site discolouration [None]
  - Conjunctivitis [None]
  - Skin depigmentation [None]
